FAERS Safety Report 9058355 (Version 1)
Quarter: 2013Q1

REPORT INFORMATION
  Report Type: Spontaneous
  Country: US (occurrence: None)
  Receive Date: 20130205
  Receipt Date: 20130205
  Transmission Date: 20140127
  Serious: Yes (Other)
  Sender: FDA-Public Use
  Company Number: None

PATIENT
  Age: 69 Year
  Sex: Female
  Weight: 63.05 kg

DRUGS (8)
  1. METHYLDOPA [Suspect]
     Indication: HYPERTENSION
     Route: 048
  2. HYDRALAZINE HCL [Suspect]
     Indication: HYPERTENSION
     Route: 048
  3. SYNTHROID [Concomitant]
  4. LISINOPRIL [Concomitant]
  5. ENTERIC LOW DOSE ASPIRIN [Concomitant]
  6. NITRO TABS [Concomitant]
  7. ISOSORB TAB [Concomitant]
  8. LIDOCAINE [Concomitant]

REACTIONS (27)
  - Swelling face [None]
  - Swelling [None]
  - Weight increased [None]
  - Arthralgia [None]
  - Paraesthesia [None]
  - Palpitations [None]
  - Tachycardia [None]
  - Heart rate irregular [None]
  - Angina pectoris [None]
  - Restless legs syndrome [None]
  - Dizziness [None]
  - Headache [None]
  - Fatigue [None]
  - Somnolence [None]
  - Vertigo [None]
  - Balance disorder [None]
  - Muscle rigidity [None]
  - Erythema [None]
  - Cough [None]
  - Disturbance in attention [None]
  - Abdominal discomfort [None]
  - Constipation [None]
  - Faecal incontinence [None]
  - Hepatic neoplasm [None]
  - Gallbladder neoplasm [None]
  - Myocardial infarction [None]
  - Blood pressure increased [None]
